FAERS Safety Report 16058457 (Version 2)
Quarter: 2019Q1

REPORT INFORMATION
  Report Type: Spontaneous
  Country: US (occurrence: US)
  Receive Date: 20190311
  Receipt Date: 20190328
  Transmission Date: 20190418
  Serious: Yes (Hospitalization)
  Sender: FDA-Public Use
  Company Number: US-NOVOPROD-650479

PATIENT
  Age: 42 Year
  Sex: Male

DRUGS (1)
  1. LEVEMIR [Suspect]
     Active Substance: INSULIN DETEMIR
     Indication: TYPE 1 DIABETES MELLITUS
     Dosage: 26-28 UNITS
     Route: 058
     Dates: start: 2015

REACTIONS (3)
  - Malaise [Unknown]
  - Panic attack [Unknown]
  - Device failure [Unknown]
